FAERS Safety Report 17169157 (Version 1)
Quarter: 2019Q4

REPORT INFORMATION
  Report Type: Spontaneous
  Country: GB (occurrence: GB)
  Receive Date: 20191218
  Receipt Date: 20191218
  Transmission Date: 20200122
  Serious: Yes (Other)
  Sender: FDA-Public Use
  Company Number: GB-ENDO PHARMACEUTICALS INC-2019-110939

PATIENT
  Age: 51 Year
  Sex: Male

DRUGS (1)
  1. FORTESTA [Suspect]
     Active Substance: TESTOSTERONE
     Indication: PROSTATE CANCER
     Dosage: 6 DF (SQUIRTS), UNKNOWN
     Route: 065
     Dates: start: 20190913, end: 20191027

REACTIONS (5)
  - Off label use [Recovered/Resolved]
  - Contraindicated product administered [Recovered/Resolved]
  - Retinal detachment [Recovered/Resolved]
  - Headache [Recovered/Resolved]
  - Intraocular pressure increased [Recovered/Resolved]

NARRATIVE: CASE EVENT DATE: 20190913
